FAERS Safety Report 8816212 (Version 1)
Quarter: 2012Q4

REPORT INFORMATION
  Report Type: 
  Country: US (occurrence: US)
  Receive Date: 20120929
  Receipt Date: 20120929
  Transmission Date: 20130627
  Serious: Yes (Death)
  Sender: FDA-Public Use
  Company Number: PHEH2012US016568

PATIENT
  Age: 58 Year
  Sex: Female

DRUGS (3)
  1. AFINITOR [Suspect]
     Dosage: 5 mg, daily
     Route: 048
  2. AVASTIN [Concomitant]
  3. ABRAXANE [Concomitant]
     Dosage: 100 mg, UNK

REACTIONS (1)
  - Death [Fatal]
